FAERS Safety Report 8473564-9 (Version None)
Quarter: 2012Q2

REPORT INFORMATION
  Report Type: 
  Country: None (occurrence: None)
  Receive Date: 20120628
  Receipt Date: 20110620
  Transmission Date: 20120825
  Serious: Yes (Life-Threatening, Other)
  Sender: FDA-Public Use
  Company Number: US-MYLANLABS-2011S1011460

PATIENT
  Age: 53 Year
  Sex: Female

DRUGS (13)
  1. LORAZEPAM [Concomitant]
  2. DEPAKOTE [Concomitant]
  3. INSULIN [Concomitant]
     Dosage: REGULAR
  4. SIMVASTATIN [Concomitant]
  5. SEROQUEL [Concomitant]
  6. ASPIRIN [Concomitant]
  7. LANTUS [Concomitant]
  8. CLOZAPINE [Suspect]
     Indication: SCHIZOAFFECTIVE DISORDER
     Route: 048
     Dates: start: 20110512, end: 20110525
  9. HALDOL [Concomitant]
  10. FISH OIL [Concomitant]
  11. LEVOCARNITINE [Concomitant]
  12. SERTRALINE HYDROCHLORIDE [Concomitant]
  13. SYNTHROID [Concomitant]

REACTIONS (3)
  - AGRANULOCYTOSIS [None]
  - GRANULOCYTOPENIA [None]
  - LEUKOPENIA [None]
